FAERS Safety Report 7373183-1 (Version None)
Quarter: 2011Q1

REPORT INFORMATION
  Report Type: 
  Country: None (occurrence: None)
  Receive Date: 20110324
  Receipt Date: 20110317
  Transmission Date: 20110831
  Serious: Yes (Other)
  Sender: FDA-Public Use
  Company Number: US-PFIZER INC-2010182456

PATIENT
  Sex: Male

DRUGS (8)
  1. CHANTIX [Suspect]
     Indication: SMOKING CESSATION THERAPY
     Dosage: 1 MG, UNK
     Route: 048
     Dates: start: 20080428, end: 20091001
  2. FLUOXETINE [Concomitant]
     Indication: DEPRESSION
     Dosage: UNK
     Dates: start: 20040101, end: 20100101
  3. ATIVAN [Concomitant]
     Indication: ANXIETY
     Dosage: UNK
     Dates: start: 20040101, end: 20090101
  4. VIAGRA [Concomitant]
     Indication: ERECTILE DYSFUNCTION
     Dosage: UNK
     Dates: start: 20030101, end: 20090101
  5. MARIJUANA [Concomitant]
     Indication: ANALGESIC THERAPY
     Dosage: UNK
     Dates: start: 20050101, end: 20100101
  6. ACETAMINOPHEN AND HYDROCODONE BITARTRATE [Concomitant]
     Indication: ANALGESIC THERAPY
     Dosage: UNK
     Dates: start: 20030101, end: 20090101
  7. ALPRAZOLAM [Concomitant]
     Indication: ANXIETY
     Dosage: UNK
     Dates: start: 20030101, end: 20100101
  8. AMOXICILLIN [Concomitant]
     Dosage: UNK
     Dates: start: 20030101, end: 20090101

REACTIONS (5)
  - ANXIETY [None]
  - SUICIDAL IDEATION [None]
  - DEPRESSION [None]
  - POST-TRAUMATIC STRESS DISORDER [None]
  - HALLUCINATION [None]
